FAERS Safety Report 7966925-5 (Version None)
Quarter: 2011Q4

REPORT INFORMATION
  Report Type: 
  Country: None (occurrence: None)
  Receive Date: 20111209
  Receipt Date: 20111206
  Transmission Date: 20120403
  Serious: Yes (Life-Threatening, Hospitalization)
  Sender: FDA-Public Use
  Company Number: NL-PFIZER INC-2011298117

PATIENT
  Sex: Female

DRUGS (1)
  1. VENLAFAXINE HCL [Suspect]
     Dosage: 37.5 MG, 1X/DAY
     Route: 064
     Dates: start: 20110101

REACTIONS (2)
  - CONGENITAL PULMONARY HYPERTENSION [None]
  - MATERNAL EXPOSURE TIMING UNSPECIFIED [None]
